FAERS Safety Report 8690278 (Version 3)
Quarter: 2014Q3

REPORT INFORMATION
  Report Type: Spontaneous
  Country: US (occurrence: US)
  Receive Date: 20120727
  Receipt Date: 20140723
  Transmission Date: 20150326
  Serious: No
  Sender: FDA-Public Use
  Company Number: US-ASTRAZENECA-2012SE19405

PATIENT
  Age: 59 Year
  Sex: Female
  Weight: 228 kg

DRUGS (6)
  1. LITHIUM CARBS [Concomitant]
     Indication: BIPOLAR DISORDER
  2. OXCARBAZEPINE. [Concomitant]
     Active Substance: OXCARBAZEPINE
     Indication: CONVULSION
  3. SEROQUEL [Suspect]
     Active Substance: QUETIAPINE FUMARATE
     Indication: BIPOLAR DISORDER
     Dosage: GENERIC
     Route: 048
     Dates: start: 201203, end: 201203
  4. SEROQUEL [Suspect]
     Active Substance: QUETIAPINE FUMARATE
     Indication: BIPOLAR DISORDER
     Route: 048
  5. CLONAZEPAM. [Concomitant]
     Active Substance: CLONAZEPAM
     Indication: SLEEP DISORDER
  6. SEROQUEL [Suspect]
     Active Substance: QUETIAPINE FUMARATE
     Indication: BIPOLAR DISORDER
     Route: 048
     Dates: end: 201203

REACTIONS (12)
  - Off label use [Not Recovered/Not Resolved]
  - Headache [Unknown]
  - Insomnia [Unknown]
  - Initial insomnia [Unknown]
  - Emotional distress [Not Recovered/Not Resolved]
  - Drug ineffective [Recovered/Resolved]
  - Drug intolerance [Unknown]
  - Sinusitis [Unknown]
  - Stress [Not Recovered/Not Resolved]
  - Weight increased [Unknown]
  - Activities of daily living impaired [Unknown]
  - Dizziness [Unknown]

NARRATIVE: CASE EVENT DATE: 201201
